FAERS Safety Report 14078509 (Version 2)
Quarter: 2018Q1

REPORT INFORMATION
  Report Type: Report from Study
  Country: VE (occurrence: VE)
  Receive Date: 20171012
  Receipt Date: 20180123
  Transmission Date: 20180508
  Serious: Yes (Life-Threatening, Hospitalization)
  Sender: FDA-Public Use
  Company Number: PHHY2017VE147451

PATIENT
  Sex: Male

DRUGS (4)
  1. EXJADE [Suspect]
     Active Substance: DEFERASIROX
     Indication: SICKLE CELL ANAEMIA
     Dosage: 1000 MG, QD (1 IN MORNING AND 1 IN NIGHT)/ 2 TABLETS OF 500 MG
     Route: 048
  2. HYDREA [Concomitant]
     Active Substance: HYDROXYUREA
     Indication: THALASSAEMIA
     Dosage: 100 MG, QD
     Route: 065
  3. EXJADE [Suspect]
     Active Substance: DEFERASIROX
     Indication: THALASSAEMIA BETA
  4. HYDREA [Concomitant]
     Active Substance: HYDROXYUREA
     Indication: SICKLE CELL ANAEMIA
     Dosage: 1500 MG, QD
     Route: 065

REACTIONS (11)
  - Bile duct obstruction [Unknown]
  - Sickle cell anaemia with crisis [Unknown]
  - Feeling abnormal [Not Recovered/Not Resolved]
  - Seminal vesicular calculus [Unknown]
  - Blood bilirubin increased [Unknown]
  - Haemoglobin decreased [Unknown]
  - Yellow skin [Unknown]
  - Thalassaemia beta [Unknown]
  - Haemolysis [Unknown]
  - Iron overload [Unknown]
  - Bone pain [Unknown]
